FAERS Safety Report 19909942 (Version 1)
Quarter: 2021Q4

REPORT INFORMATION
  Report Type: Report from Study
  Country: CO (occurrence: CO)
  Receive Date: 20211003
  Receipt Date: 20211003
  Transmission Date: 20220303
  Serious: Yes (Other)
  Sender: FDA-Public Use
  Company Number: CO-NOVARTISPH-NVSC2021CO220885

PATIENT
  Sex: Female
  Weight: 64 kg

DRUGS (1)
  1. LOSARTAN [Suspect]
     Active Substance: LOSARTAN
     Indication: Hypertension
     Dosage: 50 MG, QD (STARTED 10 YEARS AGO)
     Route: 048

REACTIONS (4)
  - Hypothyroidism [Unknown]
  - Irritable bowel syndrome [Unknown]
  - Hypersensitivity [Not Recovered/Not Resolved]
  - Idiopathic urticaria [Unknown]
